FAERS Safety Report 10620247 (Version 1)
Quarter: 2014Q4

REPORT INFORMATION
  Report Type: Spontaneous
  Country: US (occurrence: None)
  Receive Date: 20141201
  Receipt Date: 20141201
  Transmission Date: 20150529
  Serious: Yes (Hospitalization, Disabling, Other)
  Sender: FDA-Public Use
  Company Number: None

PATIENT
  Age: 23 Year
  Sex: Female
  Weight: 55 kg

DRUGS (1)
  1. MIRENA [Suspect]
     Active Substance: LEVONORGESTREL
     Dates: start: 20131104, end: 20141013

REACTIONS (17)
  - Abdominal pain upper [None]
  - Amenorrhoea [None]
  - Anxiety [None]
  - Decreased interest [None]
  - Mood swings [None]
  - Depressed mood [None]
  - Quality of life decreased [None]
  - Lymphadenopathy [None]
  - Impaired work ability [None]
  - Stress [None]
  - Oropharyngeal pain [None]
  - Skin discolouration [None]
  - Dyspepsia [None]
  - Dysphagia [None]
  - Choking sensation [None]
  - Insomnia [None]
  - Weight increased [None]

NARRATIVE: CASE EVENT DATE: 20131110
